FAERS Safety Report 7352475-6 (Version None)
Quarter: 2011Q1

REPORT INFORMATION
  Report Type: 
  Country: None (occurrence: None)
  Receive Date: 20110315
  Receipt Date: 20110301
  Transmission Date: 20110831
  Serious: No
  Sender: FDA-Public Use
  Company Number: PHHY2010TW17179

PATIENT
  Sex: Female

DRUGS (4)
  1. CHEMOTHERAPEUTICS NOS [Concomitant]
     Indication: RECTAL CANCER
  2. GLEEVEC [Suspect]
     Indication: RECTAL CANCER
  3. CHEMOTHERAPEUTICS NOS [Concomitant]
     Indication: GASTROINTESTINAL STROMAL TUMOUR
  4. GLEEVEC [Suspect]
     Indication: GASTROINTESTINAL STROMAL TUMOUR
     Dosage: 400 MG, UNK
     Route: 048
     Dates: start: 20091015

REACTIONS (13)
  - OEDEMA PERIPHERAL [None]
  - WHITE BLOOD CELL COUNT DECREASED [None]
  - OEDEMA [None]
  - AGEUSIA [None]
  - APHAGIA [None]
  - ASTHENIA [None]
  - SKIN ATROPHY [None]
  - DIARRHOEA [None]
  - RED BLOOD CELL COUNT DECREASED [None]
  - DYSGEUSIA [None]
  - DECREASED APPETITE [None]
  - ALOPECIA [None]
  - BONE PAIN [None]
